FAERS Safety Report 8437837-8 (Version None)
Quarter: 2012Q2

REPORT INFORMATION
  Report Type: 
  Country: None (occurrence: None)
  Receive Date: 20120323
  Receipt Date: 20111208
  Transmission Date: 20120825
  Serious: Yes (Hospitalization)
  Sender: FDA-Public Use
  Company Number: 163-21880-11062510

PATIENT
  Age: 77 Year
  Sex: Female

DRUGS (5)
  1. REVLIMID [Suspect]
     Indication: MULTIPLE MYELOMA
     Dosage: 25 MG, 1 IN 1 D, PO, 15 MG, QD ON DAYS 1-21, PO
     Route: 048
     Dates: start: 20100801
  2. REVLIMID [Suspect]
     Indication: MULTIPLE MYELOMA
     Dosage: 25 MG, 1 IN 1 D, PO, 15 MG, QD ON DAYS 1-21, PO
     Route: 048
     Dates: start: 20110301, end: 20110429
  3. METOPROLOL TARTRATE [Concomitant]
  4. LASIX [Concomitant]
  5. LISINOPRIL [Concomitant]

REACTIONS (2)
  - HYPOTENSION [None]
  - DEHYDRATION [None]
